FAERS Safety Report 8919790 (Version 2)
Quarter: 2012Q4

REPORT INFORMATION
  Report Type: Report from Study
  Country: CA (occurrence: CA)
  Receive Date: 20121121
  Receipt Date: 20121228
  Transmission Date: 20130627
  Serious: Yes (Other)
  Sender: FDA-Public Use
  Company Number: CA-ABBOTT-12P-028-1008812-00

PATIENT
  Sex: Female
  Weight: 45.4 kg

DRUGS (4)
  1. HUMIRA [Suspect]
     Indication: PSORIASIS
     Route: 058
     Dates: start: 20120705, end: 201208
  2. METFORMIN [Concomitant]
     Indication: PRODUCT USED FOR UNKNOWN INDICATION
  3. LITHIUM [Concomitant]
     Indication: PRODUCT USED FOR UNKNOWN INDICATION
  4. DIAMICRON [Concomitant]
     Indication: PRODUCT USED FOR UNKNOWN INDICATION

REACTIONS (13)
  - Ovarian cyst [Unknown]
  - Ovarian cancer [Not Recovered/Not Resolved]
  - Procedural pain [Unknown]
  - Post procedural constipation [Unknown]
  - Postoperative wound infection [Unknown]
  - Wound dehiscence [Unknown]
  - Ovarian cancer metastatic [Unknown]
  - Hyperplasia [Unknown]
  - Inflammation [Unknown]
  - Connective tissue inflammation [Unknown]
  - Pelvic inflammatory disease [Unknown]
  - Hepatitis C [Unknown]
  - Hepatitis C antibody negative [Unknown]
